FAERS Safety Report 4942964-3 (Version None)
Quarter: 2006Q1

REPORT INFORMATION
  Report Type: 
  Country: None (occurrence: None)
  Receive Date: 20060309
  Receipt Date: 20060221
  Transmission Date: 20060701
  Serious: Yes (Other)
  Sender: FDA-Public Use
  Company Number: 2006-BP-02176RO

PATIENT
  Age: 52 Year
  Sex: Male

DRUGS (4)
  1. ZIDOVUDINE [Suspect]
     Indication: HIV INFECTION
     Dosage: 200 MG TID (200 MG), NR
     Dates: start: 19910601
  2. DIDANOSINE [Suspect]
     Indication: HIV INFECTION
     Dosage: 400 MG BID (400 MG), NR
  3. LAMIVUDINE [Suspect]
     Indication: HIV INFECTION
     Dates: start: 19951101
  4. DAPSONE [Concomitant]

REACTIONS (3)
  - MITOCHONDRIAL MYOPATHY [None]
  - MUSCLE ATROPHY [None]
  - OSTEONECROSIS [None]
